FAERS Safety Report 5006941-9 (Version None)
Quarter: 2006Q2

REPORT INFORMATION
  Report Type: 
  Country: None (occurrence: None)
  Receive Date: 20060517
  Receipt Date: 20060511
  Transmission Date: 20061013
  Serious: Yes (Other)
  Sender: FDA-Public Use
  Company Number: 2006EN000115

PATIENT
  Age: 63 Year
  Sex: Female

DRUGS (17)
  1. ABELCET [Suspect]
     Indication: SEPSIS
     Dosage: 400 MG; IV
     Route: 042
     Dates: start: 20060420, end: 20060420
  2. CLONIDINE [Concomitant]
  3. AMLODIPINE [Concomitant]
  4. PARACETAMOL [Concomitant]
  5. PREDNISOLONE [Concomitant]
  6. FOLIC ACID [Concomitant]
  7. SPIRIVA [Concomitant]
  8. SYMBICORT TURBUHALER [Concomitant]
  9. SALBUTAMOL [Concomitant]
  10. CLEXANE [Concomitant]
  11. THEOPHYLLINE [Concomitant]
  12. PRAVASTATIN [Concomitant]
  13. ASPIRIN [Concomitant]
  14. LANSOPRAZOLE [Concomitant]
  15. CALCICHEW D3 [Concomitant]
  16. SYNERCID [Concomitant]
  17. MEROPENEM [Concomitant]

REACTIONS (8)
  - CHILLS [None]
  - CYANOSIS [None]
  - HYPERTENSION [None]
  - OXYGEN SATURATION DECREASED [None]
  - PALLOR [None]
  - PYREXIA [None]
  - TACHYCARDIA [None]
  - TACHYPNOEA [None]
